FAERS Safety Report 8475503-3 (Version None)
Quarter: 2012Q2

REPORT INFORMATION
  Report Type: 
  Country: None (occurrence: None)
  Receive Date: 20120628
  Receipt Date: 20120621
  Transmission Date: 20120825
  Serious: Yes (Hospitalization)
  Sender: FDA-Public Use
  Company Number: IT-UCBSA-031444

PATIENT
  Age: 11 Year
  Sex: Male

DRUGS (2)
  1. KEPPRA [Suspect]
     Indication: CONVULSION
     Dates: start: 20110325, end: 20110401
  2. NO CONCOMITANT MEDICATION [Concomitant]

REACTIONS (2)
  - PLATELET COUNT DECREASED [None]
  - UNEVALUABLE EVENT [None]
